FAERS Safety Report 12106208 (Version 1)
Quarter: 2016Q1

REPORT INFORMATION
  Report Type: Other
  Country: CO (occurrence: CO)
  Receive Date: 20160223
  Receipt Date: 20160223
  Transmission Date: 20160526
  Serious: Yes (Other)
  Sender: FDA-Public Use
  Company Number: CO-B. BRAUN MEDICAL INC.-1048308

PATIENT
  Age: 24 Month
  Sex: Female

DRUGS (4)
  1. HEPARIN SODIUM IN DEXTROSE [Suspect]
     Active Substance: HEPARIN SODIUM
     Route: 064
  2. IRON [Suspect]
     Active Substance: IRON
     Route: 064
  3. VITAMINS NOS [Suspect]
     Active Substance: VITAMINS
     Route: 064
  4. PARACETAMOL [Suspect]
     Active Substance: ACETAMINOPHEN
     Route: 064

REACTIONS (2)
  - Foetal exposure during pregnancy [None]
  - B precursor type acute leukaemia [None]
